FAERS Safety Report 15979754 (Version 3)
Quarter: 2019Q3

REPORT INFORMATION
  Report Type: Spontaneous
  Country: CA (occurrence: CA)
  Receive Date: 20190219
  Receipt Date: 20190927
  Transmission Date: 20191004
  Serious: Yes (Hospitalization, Other)
  Sender: FDA-Public Use
  Company Number: CA-009507513-1902CAN006500

PATIENT
  Age: 61 Year
  Sex: Female
  Weight: 84 kg

DRUGS (47)
  1. DOXORUBICIN HYDROCHLORIDE. [Suspect]
     Active Substance: DOXORUBICIN HYDROCHLORIDE
     Indication: BREAST CANCER
     Dosage: 1 EVERY 2 WEEK (S)
     Route: 042
  2. ONDANSETRON [Suspect]
     Active Substance: ONDANSETRON
     Indication: SUPPORTIVE CARE
     Dosage: 8 MILLIGRAM
     Route: 048
  3. ONDANSETRON [Suspect]
     Active Substance: ONDANSETRON
     Dosage: 8 MILLIGRAM
     Route: 048
  4. PANTOPRAZOLE [Suspect]
     Active Substance: PANTOPRAZOLE
     Indication: PRODUCT USED FOR UNKNOWN INDICATION
     Dosage: 40 MILLIGRAM, 1 EVERY 1 DAY(S)
     Route: 048
  5. PEGFILGRASTIM [Suspect]
     Active Substance: PEGFILGRASTIM
     Dosage: 6 MILLIGRAM
     Route: 058
  6. EMEND [Suspect]
     Active Substance: APREPITANT
     Dosage: 125 MILLIGRAM
     Route: 048
  7. DOXORUBICIN HYDROCHLORIDE. [Suspect]
     Active Substance: DOXORUBICIN HYDROCHLORIDE
     Dosage: 1 EVERY 2 WEEK (S)
     Route: 042
  8. METOCLOPRAMIDE. [Suspect]
     Active Substance: METOCLOPRAMIDE
     Indication: PRODUCT USED FOR UNKNOWN INDICATION
     Dosage: 10 MILLIGRAM,1 EVERY 1 DAY(S)
     Route: 048
  9. ONDANSETRON [Suspect]
     Active Substance: ONDANSETRON
     Dosage: 8 MILLIGRAM
     Route: 048
  10. ONDANSETRON [Suspect]
     Active Substance: ONDANSETRON
     Dosage: 8 MILLIGRAM
     Route: 048
  11. PEGFILGRASTIM [Suspect]
     Active Substance: PEGFILGRASTIM
     Dosage: 6 MILLIGRAM
     Route: 058
  12. DEXAMETHASONE. [Concomitant]
     Active Substance: DEXAMETHASONE
     Dosage: 20 MILLIGRAM, 1 EVERY 1 DAY(S)
     Route: 048
  13. EMEND [Suspect]
     Active Substance: APREPITANT
     Dosage: 80 MILLIGRAM, 1 EVERY 1 DAY (S)
     Route: 048
  14. EMEND [Suspect]
     Active Substance: APREPITANT
     Dosage: 125 MILLIGRAM
  15. LEVAQUIN [Suspect]
     Active Substance: LEVOFLOXACIN
     Indication: ADVERSE EVENT
     Dosage: 500 MILLIGRAM,1 EVERY 1 DAY(S)
     Route: 048
  16. PEGFILGRASTIM [Suspect]
     Active Substance: PEGFILGRASTIM
     Dosage: 6 MILLIGRAM
     Route: 058
  17. PEGFILGRASTIM [Suspect]
     Active Substance: PEGFILGRASTIM
     Dosage: 6 MILLGRAM
     Route: 058
  18. PROCYTOX [Suspect]
     Active Substance: CYCLOPHOSPHAMIDE
     Dosage: 1210 MILLIGRAM 1 EVERY 2 WEEKS
     Route: 042
  19. ACETAMINOPHEN. [Concomitant]
     Active Substance: ACETAMINOPHEN
     Indication: PRODUCT USED FOR UNKNOWN INDICATION
     Dosage: 1300 MILLIGRAM
     Route: 048
  20. PACLITAXEL. [Concomitant]
     Active Substance: PACLITAXEL
     Indication: BREAST CANCER
     Route: 065
  21. EMEND [Suspect]
     Active Substance: APREPITANT
     Dosage: 80 MILLIGRAM, 1 EVERY 1 DAY (S)
     Route: 048
  22. ONDANSETRON [Suspect]
     Active Substance: ONDANSETRON
     Dosage: 8 MILLIGRAM
     Route: 048
  23. ONDANSETRON [Suspect]
     Active Substance: ONDANSETRON
     Dosage: 8 MILLIGRAM
     Route: 048
  24. PEGFILGRASTIM [Suspect]
     Active Substance: PEGFILGRASTIM
     Indication: SUPPORTIVE CARE
     Dosage: 6 MILLIGRAM
     Route: 058
  25. PEGFILGRASTIM [Suspect]
     Active Substance: PEGFILGRASTIM
     Dosage: 6 MILLIGRAM
     Route: 058
  26. PREDNISONE. [Suspect]
     Active Substance: PREDNISONE
     Indication: ADVERSE EVENT
     Dosage: 30 MILLIGRAM, 1 EVERY 1 DAY(S)
     Route: 065
  27. ONDANSETRON [Suspect]
     Active Substance: ONDANSETRON
     Dosage: 8 MILLIGRAM
     Route: 048
  28. PROCYTOX [Suspect]
     Active Substance: CYCLOPHOSPHAMIDE
     Dosage: 1210 MILLIGRAM 1 EVERY 2 WEEKS
     Route: 042
  29. CITALOPRAM [Concomitant]
     Active Substance: CITALOPRAM HYDROBROMIDE
     Indication: PRODUCT USED FOR UNKNOWN INDICATION
     Dosage: 20 MILLIGRAM, 1 EVERY 1 DAY(S)
     Route: 048
  30. GABAPENTIN. [Concomitant]
     Active Substance: GABAPENTIN
     Indication: PRODUCT USED FOR UNKNOWN INDICATION
     Route: 048
  31. HYDROMORPHONE [Concomitant]
     Active Substance: HYDROMORPHONE
     Indication: PRODUCT USED FOR UNKNOWN INDICATION
     Dosage: 2 MILLIGRAM
     Route: 048
  32. EMEND [Suspect]
     Active Substance: APREPITANT
     Dosage: 80 MILLIGRAM, 1 EVERY 1 DAY (S)
     Route: 048
  33. EMEND [Suspect]
     Active Substance: APREPITANT
     Dosage: 125 MILLIGRAM
     Route: 048
  34. EMEND [Suspect]
     Active Substance: APREPITANT
     Dosage: 80 MILLIGRAM, 1 EVERY 1 DAY (S)
     Route: 048
  35. DOXORUBICIN HYDROCHLORIDE. [Suspect]
     Active Substance: DOXORUBICIN HYDROCHLORIDE
     Dosage: 1 EVERY 2 WEEK (S)
     Route: 042
  36. PROCYTOX [Suspect]
     Active Substance: CYCLOPHOSPHAMIDE
     Dosage: 1210 MILLIGRAM 1 EVERY 2 WEEKS
     Route: 042
  37. TRASTUZUMAB. [Suspect]
     Active Substance: TRASTUZUMAB
     Indication: BREAST CANCER
     Route: 065
  38. DEXAMETHASONE. [Concomitant]
     Active Substance: DEXAMETHASONE
     Indication: SUPPORTIVE CARE
     Dosage: 20 MILLIGRAM, 1 EVERY 1 DAY(S)
     Route: 048
  39. EMEND [Suspect]
     Active Substance: APREPITANT
     Indication: SUPPORTIVE CARE
     Dosage: 125 MILLIGRAM
     Route: 048
  40. PREDNISONE. [Suspect]
     Active Substance: PREDNISONE
     Dosage: 40 MILLIGRAM, 1 EVERY 1 DAY(S)
     Route: 065
  41. DOXORUBICIN HYDROCHLORIDE. [Suspect]
     Active Substance: DOXORUBICIN HYDROCHLORIDE
     Dosage: 1 EVERY 2 WEEK (S)
     Route: 042
  42. PEGFILGRASTIM [Suspect]
     Active Substance: PEGFILGRASTIM
     Dosage: 6 MILLIGRAM
     Route: 058
  43. PROCYTOX [Suspect]
     Active Substance: CYCLOPHOSPHAMIDE
     Indication: BREAST CANCER
     Dosage: 1210 MILLIGRAM 1 EVERY 2 WEEKS
     Route: 042
  44. TAMIFLU [Suspect]
     Active Substance: OSELTAMIVIR PHOSPHATE
     Indication: ADVERSE EVENT
     Dosage: 75 MILLIGRAM, 2 EVERY 1 DAY(S)
     Route: 065
  45. DEXAMETHASONE. [Concomitant]
     Active Substance: DEXAMETHASONE
     Dosage: 20 MILLIGRAM, 1 EVERY 1 DAY(S)
     Route: 048
  46. NAPROXEN. [Concomitant]
     Active Substance: NAPROXEN
     Indication: PRODUCT USED FOR UNKNOWN INDICATION
     Dosage: 220 MILLIGRAM
     Route: 048
  47. ONDANSETRON [Suspect]
     Active Substance: ONDANSETRON
     Dosage: 8 MILLIGRAM
     Route: 048

REACTIONS (8)
  - Nausea [Recovering/Resolving]
  - Gastrointestinal disorder [Recovering/Resolving]
  - Respiratory failure [Recovering/Resolving]
  - Atelectasis [Recovering/Resolving]
  - Decreased appetite [Recovering/Resolving]
  - Asthenia [Recovering/Resolving]
  - Dyspnoea [Recovering/Resolving]
  - Respiratory syncytial virus infection [Recovering/Resolving]
